FAERS Safety Report 23651158 (Version 2)
Quarter: 2024Q1

REPORT INFORMATION
  Report Type: Spontaneous
  Country: RO (occurrence: RO)
  Receive Date: 20240320
  Receipt Date: 20240328
  Transmission Date: 20240410
  Serious: Yes (Death, Life-Threatening, Hospitalization, Other)
  Sender: FDA-Public Use
  Company Number: RO-ROMPHARMP-202403051

PATIENT
  Age: 53 Year
  Sex: Female

DRUGS (6)
  1. CYCLOPHOSPHAMIDE [Suspect]
     Active Substance: CYCLOPHOSPHAMIDE
     Indication: Plasmablastic lymphoma
     Dosage: CHEMOTHERAPY PROTOCOL HYPER-CVAD/MA (HYPER-FRACTIONATED CYCLOPHOSPHAMIDE, VINCRISTINE, DOXORUBICIN,
     Route: 065
  2. CYTARABINE [Suspect]
     Active Substance: CYTARABINE
     Indication: Plasmablastic lymphoma
     Dosage: CHEMOTHERAPY PROTOCOL HYPER-CVAD/MA (HYPER-FRACTIONATED CYCLOPHOSPHAMIDE, VINCRISTINE, DOXORUBICIN,
     Route: 065
  3. DEXAMETHASONE [Suspect]
     Active Substance: DEXAMETHASONE
     Indication: Plasmablastic lymphoma
     Dosage: CHEMOTHERAPY PROTOCOL HYPER-CVAD/MA (HYPER-FRACTIONATED CYCLOPHOSPHAMIDE, VINCRISTINE, DOXORUBICIN,
     Route: 065
  4. DOXORUBICIN [Suspect]
     Active Substance: DOXORUBICIN
     Indication: Plasmablastic lymphoma
     Dosage: CHEMOTHERAPY PROTOCOL HYPER-CVAD/MA (HYPER-FRACTIONATED CYCLOPHOSPHAMIDE, VINCRISTINE, DOXORUBICIN,
     Route: 065
  5. METHOTREXATE [Suspect]
     Active Substance: METHOTREXATE
     Indication: Plasmablastic lymphoma
     Dosage: CHEMOTHERAPY PROTOCOL HYPER-CVAD/MA (HYPER-FRACTIONATED CYCLOPHOSPHAMIDE, VINCRISTINE, DOXORUBICIN,
     Route: 065
  6. VINCRISTINE [Suspect]
     Active Substance: VINCRISTINE
     Indication: Plasmablastic lymphoma
     Dosage: CHEMOTHERAPY PROTOCOL HYPER-CVAD/MA (HYPER-FRACTIONATED CYCLOPHOSPHAMIDE, VINCRISTINE, DOXORUBICIN,
     Route: 065

REACTIONS (11)
  - Anal fistula [Fatal]
  - Clostridium difficile colitis [Fatal]
  - Sepsis [Fatal]
  - Pneumonia klebsiella [Fatal]
  - Escherichia sepsis [Fatal]
  - Cytomegalovirus chorioretinitis [Fatal]
  - Anal abscess [Fatal]
  - Disseminated intravascular coagulation [Fatal]
  - Chemotherapy [Fatal]
  - Bone marrow failure [Fatal]
  - Death [Fatal]
